FAERS Safety Report 12475777 (Version 1)
Quarter: 2016Q2

REPORT INFORMATION
  Report Type: Spontaneous
  Country: DE (occurrence: DE)
  Receive Date: 20160617
  Receipt Date: 20160617
  Transmission Date: 20160815
  Serious: Yes (Other)
  Sender: FDA-Public Use
  Company Number: DE-B.I. PHARMACEUTICALS,INC./RIDGEFIELD-2016-BI-38043DE

PATIENT
  Age: 4 Year
  Sex: Male

DRUGS (2)
  1. GILOTRIF [Suspect]
     Active Substance: AFATINIB
     Dosage: MINIMAL DOSE
     Route: 048
  2. GILOTRIF [Suspect]
     Active Substance: AFATINIB
     Indication: NEOPLASM
     Route: 048

REACTIONS (9)
  - Diarrhoea [Recovered/Resolved]
  - Unevaluable event [Recovered/Resolved]
  - Metastases to central nervous system [Unknown]
  - Infection [Unknown]
  - Off label use [Unknown]
  - Adverse event [Unknown]
  - Pain in extremity [Unknown]
  - Asthenia [Not Recovered/Not Resolved]
  - Radiation injury [Unknown]
